FAERS Safety Report 4604395-5 (Version None)
Quarter: 2005Q2

REPORT INFORMATION
  Report Type: 
  Country: None (occurrence: None)
  Receive Date: 20050214
  Receipt Date: 20041118
  Transmission Date: 20051028
  Serious: No
  Sender: FDA-Public Use
  Company Number: US_0411108637

PATIENT
  Age: 73 Year
  Sex: Male
  Weight: 98 kg

DRUGS (6)
  1. CIALIS [Suspect]
     Indication: ERECTILE DYSFUNCTION
     Dosage: 20 MG AS NEEDED
     Dates: start: 20040501
  2. HYROCHLOROTHIAZIDE W/VALSARTAN [Concomitant]
  3. RAMIPRIL [Concomitant]
  4. BILBERRY [Concomitant]
  5. NIACIN [Concomitant]
  6. GINGKOMIN (GINKGO BILOBA) [Concomitant]

REACTIONS (2)
  - OVERWEIGHT [None]
  - THERAPEUTIC RESPONSE DECREASED [None]
